FAERS Safety Report 15291729 (Version 2)
Quarter: 2018Q4

REPORT INFORMATION
  Report Type: Spontaneous
  Country: US (occurrence: US)
  Receive Date: 20180817
  Receipt Date: 20181002
  Transmission Date: 20190204
  Serious: Yes (Hospitalization, Other)
  Sender: FDA-Public Use
  Company Number: US-JAZZ-2018-US-012361

PATIENT
  Age: 42 Year
  Sex: Female

DRUGS (3)
  1. METHYLPHENIDATE. [Suspect]
     Active Substance: METHYLPHENIDATE
     Indication: PRODUCT USED FOR UNKNOWN INDICATION
  2. ONDANSETRON [Suspect]
     Active Substance: ONDANSETRON
     Indication: PRODUCT USED FOR UNKNOWN INDICATION
  3. XYREM [Suspect]
     Active Substance: SODIUM OXYBATE
     Indication: PRODUCT USED FOR UNKNOWN INDICATION
     Route: 048

REACTIONS (19)
  - Oliguria [Recovered/Resolved]
  - Hypoxia [Unknown]
  - Mydriasis [Recovered/Resolved]
  - Hypotension [Recovered/Resolved]
  - Respiratory depression [Recovered/Resolved]
  - Irritability [Recovered/Resolved]
  - Pupil fixed [Recovered/Resolved]
  - Acidosis [Recovered/Resolved]
  - Atrial fibrillation [Recovering/Resolving]
  - Aspiration [Unknown]
  - Chromaturia [Recovered/Resolved]
  - Overdose [Unknown]
  - Anuria [Recovered/Resolved]
  - Agitation [Recovered/Resolved]
  - Sedation complication [Unknown]
  - Coma [Recovered/Resolved]
  - Arrhythmia [Recovered/Resolved]
  - Tachycardia [Recovered/Resolved]
  - Suicide attempt [Unknown]

NARRATIVE: CASE EVENT DATE: 2010
